FAERS Safety Report 4505270-7 (Version None)
Quarter: 2004Q4

REPORT INFORMATION
  Report Type: 
  Country: None (occurrence: None)
  Receive Date: 20041015
  Receipt Date: 20040616
  Transmission Date: 20050328
  Serious: Yes (Other)
  Sender: FDA-Public Use
  Company Number: 2004035449

PATIENT
  Age: 69 Year
  Sex: Female
  Weight: 68.0396 kg

DRUGS (4)
  1. NEURONTIN [Suspect]
     Indication: NEURALGIA
     Dosage: 1200 MG (300 MG, Q6H) INTERVAL: ONCE A DAY) ORAL
     Route: 048
     Dates: start: 20040401
  2. METHADONE (METHADONE) [Suspect]
     Indication: NEURALGIA
     Dosage: 10 MG (2.5 MG, 4 IN 1 D)
     Dates: start: 20040101
  3. ESTRADIOL [Concomitant]
  4. MULTIVITAMIN [Concomitant]

REACTIONS (6)
  - AGEUSIA [None]
  - ANOREXIA [None]
  - DYSGEUSIA [None]
  - FEELING ABNORMAL [None]
  - NAUSEA [None]
  - PAIN [None]
